FAERS Safety Report 7921829-9 (Version None)
Quarter: 2011Q4

REPORT INFORMATION
  Report Type: 
  Country: None (occurrence: None)
  Receive Date: 20111117
  Receipt Date: 20111110
  Transmission Date: 20120403
  Serious: Yes (Hospitalization, Other)
  Sender: FDA-Public Use
  Company Number: US-ABBOTT-11P-163-0873241-00

PATIENT
  Sex: Female

DRUGS (2)
  1. HUMIRA [Suspect]
     Indication: PSORIASIS
     Route: 058
     Dates: start: 20110519, end: 20110519
  2. HUMIRA [Suspect]
     Route: 058

REACTIONS (4)
  - ASTHMA [None]
  - DYSPHONIA [None]
  - LUNG ADENOCARCINOMA STAGE I [None]
  - COUGH [None]
